FAERS Safety Report 12369271 (Version 3)
Quarter: 2016Q4

REPORT INFORMATION
  Report Type: Report from Study
  Country: US (occurrence: US)
  Receive Date: 20160513
  Receipt Date: 20161228
  Transmission Date: 20170207
  Serious: Yes (Other)
  Sender: FDA-Public Use
  Company Number: PHEH2016US011740

PATIENT
  Sex: Male

DRUGS (2)
  1. RIVASTIGMINE SANDOZ [Suspect]
     Active Substance: RIVASTIGMINE
     Indication: PRODUCT USED FOR UNKNOWN INDICATION
     Dosage: 2 DF, (4.5 MG)
     Route: 062
  2. EXELON PATCH [Suspect]
     Active Substance: RIVASTIGMINE
     Indication: PRODUCT USED FOR UNKNOWN INDICATION
     Dosage: 4.6 MG, QD PATCH 5 CM2
     Route: 062

REACTIONS (7)
  - Mobility decreased [Unknown]
  - Heart rate increased [Recovering/Resolving]
  - Loss of consciousness [Recovered/Resolved]
  - Oxygen saturation decreased [Recovering/Resolving]
  - Speech disorder [Unknown]
  - Fall [Recovering/Resolving]
  - Drug dispensing error [Unknown]
